FAERS Safety Report 4334381-4 (Version None)
Quarter: 2004Q1

REPORT INFORMATION
  Report Type: 
  Country: None (occurrence: None)
  Receive Date: 20040326
  Receipt Date: 20031216
  Transmission Date: 20041129
  Serious: No
  Sender: FDA-Public Use
  Company Number: US-JNJFOC-20031203714

PATIENT
  Age: 74 Year
  Sex: Female

DRUGS (3)
  1. REMINYL [Suspect]
     Indication: DEMENTIA ALZHEIMER'S TYPE
     Dosage: 4 MG, 2 IN 1 DAY, ORAL;8 MG, 2 IN 1 DAY, ORAL; 12 MG, 2 IN 1 DAY, ORAL
     Route: 048
     Dates: start: 20021101
  2. REMINYL [Suspect]
     Indication: DEMENTIA ALZHEIMER'S TYPE
     Dosage: 4 MG, 2 IN 1 DAY, ORAL;8 MG, 2 IN 1 DAY, ORAL; 12 MG, 2 IN 1 DAY, ORAL
     Route: 048
     Dates: start: 20030801
  3. REMINYL [Suspect]
     Indication: DEMENTIA ALZHEIMER'S TYPE
     Dosage: 4 MG, 2 IN 1 DAY, ORAL;8 MG, 2 IN 1 DAY, ORAL; 12 MG, 2 IN 1 DAY, ORAL
     Route: 048
     Dates: start: 20031001

REACTIONS (2)
  - DIARRHOEA [None]
  - NAUSEA [None]
